FAERS Safety Report 7767095-9 (Version None)
Quarter: 2011Q3

REPORT INFORMATION
  Report Type: 
  Country: None (occurrence: None)
  Receive Date: 20110922
  Receipt Date: 20101206
  Transmission Date: 20111222
  Serious: No
  Sender: FDA-Public Use
  Company Number: US-ASTRAZENECA-2010SE57601

PATIENT
  Age: 46 Year
  Sex: Male

DRUGS (4)
  1. AVENTELIN [Concomitant]
  2. SEROQUEL XR [Suspect]
     Indication: BIPOLAR DISORDER
     Route: 048
     Dates: start: 20101001, end: 20101204
  3. DIAZEPAM [Concomitant]
  4. CARBAMAZEPAM [Concomitant]

REACTIONS (3)
  - INSOMNIA [None]
  - FEELING ABNORMAL [None]
  - DRUG DOSE OMISSION [None]
